FAERS Safety Report 7532659-4 (Version None)
Quarter: 2011Q2

REPORT INFORMATION
  Report Type: 
  Country: None (occurrence: None)
  Receive Date: 20110608
  Receipt Date: 20110520
  Transmission Date: 20111010
  Serious: Yes (Death, Hospitalization)
  Sender: FDA-Public Use
  Company Number: A0773087A

PATIENT
  Age: 88 Year
  Sex: Male
  Weight: 90.9 kg

DRUGS (11)
  1. INSULIN [Concomitant]
  2. LASIX [Concomitant]
  3. AVANDAMET [Suspect]
     Route: 048
  4. GLUCOPHAGE [Concomitant]
  5. TERAZOSIN [Concomitant]
  6. AVANDIA [Suspect]
     Dosage: 2MG TWICE PER DAY
     Route: 048
     Dates: start: 19991001, end: 20060701
  7. GLYBURIDE [Concomitant]
  8. THYROID MEDICATION [Concomitant]
  9. BETHANECHOL [Concomitant]
  10. PROTONIX [Concomitant]
  11. GLUCERNA [Concomitant]

REACTIONS (9)
  - CARDIAC FAILURE CONGESTIVE [None]
  - MYOCARDIAL INFARCTION [None]
  - CORONARY ARTERY DISEASE [None]
  - RESPIRATORY FAILURE [None]
  - STAPHYLOCOCCAL INFECTION [None]
  - SEPSIS [None]
  - COMA [None]
  - KIDNEY INFECTION [None]
  - RENAL FAILURE ACUTE [None]
